FAERS Safety Report 10386057 (Version 1)
Quarter: 2014Q1

REPORT INFORMATION
  Report Type: Spontaneous
  Country: US (occurrence: None)
  Receive Date: 20140306
  Receipt Date: 20140306
  Transmission Date: 20141002
  Serious: Yes (Other)
  Sender: FDA-Public Use
  Company Number: 163-21880-13120367

PATIENT
  Age: 87 Year
  Sex: Female

DRUGS (2)
  1. REVLIMID (LENALIDOMIDE) (15 MILLIGRAM, CAPSULES) [Suspect]
     Indication: PLASMA CELL MYELOMA
     Route: 048
     Dates: start: 20131125
  2. IMDUR (ISOSORBIDE MONONITRATE) [Concomitant]

REACTIONS (3)
  - Rash pruritic [None]
  - Syncope [None]
  - Local swelling [None]
